FAERS Safety Report 17295026 (Version 1)
Quarter: 2020Q1

REPORT INFORMATION
  Report Type: Report from Study
  Country: IL (occurrence: IL)
  Receive Date: 20200121
  Receipt Date: 20200121
  Transmission Date: 20200409
  Serious: Yes (Hospitalization)
  Sender: FDA-Public Use
  Company Number: IL-IPSEN BIOPHARMACEUTICALS, INC.-2019-24740

PATIENT
  Age: 76 Year
  Sex: Female

DRUGS (9)
  1. ELIQUIS [Concomitant]
     Active Substance: APIXABAN
  2. EZECOR [Concomitant]
  3. TRAJENTA [Concomitant]
     Active Substance: LINAGLIPTIN
  4. OMEPRADEX [Concomitant]
     Active Substance: OMEPRAZOLE
  5. SOMATULINE [Suspect]
     Active Substance: LANREOTIDE ACETATE
     Indication: THYMOMA
     Route: 065
     Dates: start: 20191129, end: 201912
  6. PREDNISONE. [Concomitant]
     Active Substance: PREDNISONE
  7. SOMATULINE [Suspect]
     Active Substance: LANREOTIDE ACETATE
     Indication: OFF LABEL USE
     Route: 065
     Dates: start: 20200106
  8. CEFOVIT [Concomitant]
  9. BROTIZOLAM [Concomitant]
     Active Substance: BROTIZOLAM

REACTIONS (5)
  - Pyrexia [Recovered/Resolved]
  - Pyrexia [Unknown]
  - Off label use [Unknown]
  - Neutrophil count decreased [Recovered/Resolved]
  - Constipation [Recovered/Resolved]

NARRATIVE: CASE EVENT DATE: 20191129
